FAERS Safety Report 15232367 (Version 2)
Quarter: 2018Q3

REPORT INFORMATION
  Report Type: Spontaneous
  Country: HR (occurrence: HR)
  Receive Date: 20180802
  Receipt Date: 20180910
  Transmission Date: 20181010
  Serious: Yes (Hospitalization, Other)
  Sender: FDA-Public Use
  Company Number: PHHY2018HR012696

PATIENT
  Age: 73 Year
  Sex: Female

DRUGS (3)
  1. LETROZOLE. [Suspect]
     Active Substance: LETROZOLE
     Indication: BREAST CANCER METASTATIC
     Dosage: 2.5 MG, 1X/DAY
     Route: 065
     Dates: start: 20160202
  2. PALBOCICLIB [Suspect]
     Active Substance: PALBOCICLIB
     Indication: BREAST CANCER METASTATIC
     Dosage: 125 MG, QD 3 WEEKS IN/ 1 WEEK OFF
     Route: 065
     Dates: start: 20160601, end: 20171011
  3. PALBOCICLIB [Suspect]
     Active Substance: PALBOCICLIB
     Dosage: 125 MG, QD 125 MG, CYCLIC (ONCE A DAY, 3 WEEKS ON/1 WEEK OFF)
     Route: 065

REACTIONS (23)
  - Chronic gastritis [Unknown]
  - Dysuria [Unknown]
  - Neutropenia [Recovered/Resolved]
  - Decreased appetite [Recovered/Resolved]
  - Cholelithiasis [Unknown]
  - Leukopenia [Recovered/Resolved]
  - Weight decreased [Unknown]
  - Dermatitis bullous [Unknown]
  - Cholecystitis [Unknown]
  - Pyrexia [Unknown]
  - Pruritus [Unknown]
  - Breast cancer [Unknown]
  - Malignant neoplasm progression [Unknown]
  - Liver function test abnormal [Unknown]
  - Fatigue [Unknown]
  - Flatulence [Unknown]
  - Gastrooesophageal reflux disease [Unknown]
  - Febrile neutropenia [Recovered/Resolved]
  - Bone pain [Unknown]
  - Cough [Unknown]
  - Nausea [Unknown]
  - Bile duct stone [Unknown]
  - Skin burning sensation [Unknown]

NARRATIVE: CASE EVENT DATE: 201606
